FAERS Safety Report 5767265-5 (Version None)
Quarter: 2008Q2

REPORT INFORMATION
  Report Type: 
  Country: None (occurrence: None)
  Receive Date: 20080609
  Receipt Date: 20080528
  Transmission Date: 20081010
  Serious: Yes (Death)
  Sender: FDA-Public Use
  Company Number: 001140

PATIENT
  Age: 67 Year
  Sex: Male

DRUGS (5)
  1. BUSULFEX [Suspect]
     Indication: STEM CELL TRANSPLANT
     Dosage: 4 ML, DAILY DOSE INTRAVENOUS
     Route: 042
  2. CYCLOSPORINE [Suspect]
  3. FLUDARABINE PHOSPHATE [Concomitant]
  4. ALEMTUZUMAS [Concomitant]
  5. PREDNISOLONE [Concomitant]

REACTIONS (15)
  - ACUTE GRAFT VERSUS HOST DISEASE IN SKIN [None]
  - BLINDNESS [None]
  - CYTOMEGALOVIRUS INFECTION [None]
  - DEAFNESS [None]
  - DEMYELINATION [None]
  - DISORIENTATION [None]
  - GENERAL PHYSICAL HEALTH DETERIORATION [None]
  - HEMIANOPIA HOMONYMOUS [None]
  - INCONTINENCE [None]
  - JC VIRUS INFECTION [None]
  - MOOD SWINGS [None]
  - PROGRESSIVE MULTIFOCAL LEUKOENCEPHALOPATHY [None]
  - SOMNOLENCE [None]
  - TREMOR [None]
  - VERTIGO [None]
